FAERS Safety Report 16343193 (Version 1)
Quarter: 2019Q2

REPORT INFORMATION
  Report Type: Spontaneous
  Country: US (occurrence: US)
  Receive Date: 20190522
  Receipt Date: 20190522
  Transmission Date: 20190711
  Serious: No
  Sender: FDA-Public Use
  Company Number: US-PERRIGO-18US008380

PATIENT
  Age: 3 Month
  Sex: Male
  Weight: 4.99 kg

DRUGS (2)
  1. MOMETASONE FUROATE. [Suspect]
     Active Substance: MOMETASONE FUROATE
     Indication: SEBORRHOEIC DERMATITIS
     Dosage: 1 DROP, SINGLE
     Route: 061
     Dates: start: 20180813, end: 20180813
  2. HEPATITIS VACCINES [Concomitant]
     Active Substance: UNSPECIFIED INGREDIENT
     Indication: IMMUNISATION
     Dosage: UNK
     Route: 030
     Dates: start: 2018, end: 2018

REACTIONS (2)
  - Product administered to patient of inappropriate age [Recovered/Resolved]
  - Alopecia [Recovered/Resolved]

NARRATIVE: CASE EVENT DATE: 20180813
